FAERS Safety Report 13227096 (Version 1)
Quarter: 2017Q1

REPORT INFORMATION
  Report Type: Spontaneous
  Country: US (occurrence: US)
  Receive Date: 20170213
  Receipt Date: 20170213
  Transmission Date: 20170428
  Serious: No
  Sender: FDA-Public Use
  Company Number: US-IGSA-GTI004545

PATIENT
  Age: 56 Year
  Sex: Female
  Weight: 69 kg

DRUGS (17)
  1. ALLEGRA [Concomitant]
     Active Substance: FEXOFENADINE HYDROCHLORIDE
  2. APAP [Concomitant]
     Active Substance: ACETAMINOPHEN
     Indication: PREMEDICATION
  3. MELOXICAM. [Concomitant]
     Active Substance: MELOXICAM
  4. TIZANIDINE. [Concomitant]
     Active Substance: TIZANIDINE
  5. OMEPRAZOLE. [Concomitant]
     Active Substance: OMEPRAZOLE
  6. SPIRIVA [Concomitant]
     Active Substance: TIOTROPIUM BROMIDE MONOHYDRATE
  7. FLECAINIDE [Concomitant]
     Active Substance: FLECAINIDE
  8. LOSARTAN. [Concomitant]
     Active Substance: LOSARTAN
  9. IBU [Concomitant]
     Active Substance: IBUPROFEN
  10. HCTZ [Concomitant]
     Active Substance: HYDROCHLOROTHIAZIDE
  11. ASA [Concomitant]
     Active Substance: ASPIRIN
  12. ALPRAZOLAM. [Concomitant]
     Active Substance: ALPRAZOLAM
  13. PROLASTIN-C [Suspect]
     Active Substance: .ALPHA.1-PROTEINASE INHIBITOR HUMAN
     Indication: ALPHA-1 ANTI-TRYPSIN DEFICIENCY
     Dates: start: 20160623, end: 20160826
  14. SALINE /00075401/ [Concomitant]
     Active Substance: SODIUM CHLORIDE
  15. DULERA [Concomitant]
     Active Substance: FORMOTEROL FUMARATE DIHYDRATE\MOMETASONE FUROATE
  16. CHANTIX [Concomitant]
     Active Substance: VARENICLINE TARTRATE
  17. CARDIZEM [Concomitant]
     Active Substance: DILTIAZEM HYDROCHLORIDE

REACTIONS (5)
  - Peripheral swelling [Recovered/Resolved]
  - Headache [Recovered/Resolved]
  - Arthralgia [Recovered/Resolved]
  - Swelling face [Recovered/Resolved]
  - Dysuria [Recovered/Resolved]

NARRATIVE: CASE EVENT DATE: 20160623
